FAERS Safety Report 16047886 (Version 2)
Quarter: 2021Q3

REPORT INFORMATION
  Report Type: Report from Study
  Country: DE (occurrence: DE)
  Receive Date: 20190307
  Receipt Date: 20210810
  Transmission Date: 20211014
  Serious: Yes (Hospitalization, Other)
  Sender: FDA-Public Use
  Company Number: DE-MYLANLABS-2019M1020427

PATIENT
  Sex: Female

DRUGS (22)
  1. METHOTREXATE. [Suspect]
     Active Substance: METHOTREXATE
     Dosage: 15 MILLIGRAM
     Dates: start: 20170503
  2. HYDROXYCHLOROQUINE [Suspect]
     Active Substance: HYDROXYCHLOROQUINE
     Indication: PRODUCT USED FOR UNKNOWN INDICATION
     Dosage: 200 MILLIGRAM
     Dates: start: 20170503
  3. HYDROXYCHLOROQUINE [Suspect]
     Active Substance: HYDROXYCHLOROQUINE
     Dosage: 200 MILLIGRAM
     Dates: start: 20171213
  4. PREDNISOLONE                       /00016202/ [Concomitant]
     Active Substance: PREDNISOLONE
     Dosage: UNK
  5. HYDROMORPHONE [Concomitant]
     Active Substance: HYDROMORPHONE
     Dosage: UNK
  6. COLECALCIFEROL [Concomitant]
     Active Substance: CHOLECALCIFEROL
     Dosage: UNK
  7. RAMIPRIL. [Concomitant]
     Active Substance: RAMIPRIL
     Dosage: UNK
  8. METHOTREXATE. [Suspect]
     Active Substance: METHOTREXATE
     Dosage: 20 MILLIGRAM
     Dates: start: 20170904
  9. HYDROXYCHLOROQUINE [Suspect]
     Active Substance: HYDROXYCHLOROQUINE
     Dosage: 200 MILLIGRAM
     Dates: start: 20170131
  10. METHOTREXATE. [Suspect]
     Active Substance: METHOTREXATE
     Dosage: 7.5 MILLIGRAM
     Dates: start: 20180718
  11. LEFLUNOMIDE. [Suspect]
     Active Substance: LEFLUNOMIDE
     Indication: PRODUCT USED FOR UNKNOWN INDICATION
     Dosage: 10 MILLIGRAM
     Dates: start: 20171213
  12. ERELZI [Suspect]
     Active Substance: ETANERCEPT-SZZS
     Indication: RHEUMATOID ARTHRITIS
     Dosage: 50 MILLIGRAM, QW
     Route: 058
     Dates: start: 20180405
  13. ERELZI [Suspect]
     Active Substance: ETANERCEPT-SZZS
     Dosage: 50 MILLIGRAM, QW
     Route: 058
     Dates: start: 201801
  14. METHOTREXATE. [Suspect]
     Active Substance: METHOTREXATE
     Indication: PRODUCT USED FOR UNKNOWN INDICATION
     Dosage: 7.5 MG, QW
     Route: 065
  15. METHOTREXATE. [Suspect]
     Active Substance: METHOTREXATE
     Dosage: 15 MILLIGRAM
     Dates: start: 20170113
  16. HYDROXYCHLOROQUINE [Suspect]
     Active Substance: HYDROXYCHLOROQUINE
     Dosage: 200 MILLIGRAM
     Dates: start: 20170904
  17. PANTOPRAZOLE SODIUM SESQUIHYDRATE [Concomitant]
     Active Substance: PANTOPRAZOLE SODIUM
  18. METHOTREXATE. [Suspect]
     Active Substance: METHOTREXATE
     Dosage: 5 MILLIGRAM
     Dates: start: 20171213
  19. AMITRIPTYLINE HYDROCHLORIDE. [Concomitant]
     Active Substance: AMITRIPTYLINE HYDROCHLORIDE
     Dosage: UNK
  20. LEVOTHYROXINE SODIUM. [Concomitant]
     Active Substance: LEVOTHYROXINE SODIUM
     Dosage: UNK
  21. CLEXANE [Concomitant]
     Active Substance: ENOXAPARIN SODIUM
     Dosage: UNK
  22. FOLIC ACID. [Concomitant]
     Active Substance: FOLIC ACID

REACTIONS (18)
  - Foot deformity [Recovered/Resolved]
  - Femur fracture [Unknown]
  - Chondrocalcinosis [Unknown]
  - Intentional self-injury [Unknown]
  - Thrombocytopenia [Not Recovered/Not Resolved]
  - Polyneuropathy [Unknown]
  - Pancreatic duct dilatation [Unknown]
  - Osteoporotic fracture [Unknown]
  - Mobility decreased [Unknown]
  - Deep vein thrombosis [Unknown]
  - Macroangiopathy [Unknown]
  - Rheumatoid nodule [Unknown]
  - Hepatic cyst [Unknown]
  - Arthritis [Recovered/Resolved]
  - Osteomyelitis [Recovered/Resolved]
  - Rheumatoid arthritis [Recovered/Resolved]
  - Ophthalmic vein thrombosis [Recovered/Resolved]
  - Adrenal disorder [Not Recovered/Not Resolved]

NARRATIVE: CASE EVENT DATE: 201706
